FAERS Safety Report 16779931 (Version 1)
Quarter: 2019Q3

REPORT INFORMATION
  Report Type: Spontaneous
  Country: JP (occurrence: JP)
  Receive Date: 20190906
  Receipt Date: 20190906
  Transmission Date: 20191005
  Serious: Yes (Other)
  Sender: FDA-Public Use
  Company Number: JP-ACTELION-A-CH2019-194936

PATIENT
  Age: 4 Month
  Sex: Male

DRUGS (1)
  1. BRAZAVES [Suspect]
     Active Substance: MIGLUSTAT
     Indication: NIEMANN-PICK DISEASE
     Route: 048

REACTIONS (12)
  - Liver transplant [Unknown]
  - Transfusion [Unknown]
  - Pancytopenia [Recovering/Resolving]
  - Respiratory failure [Recovering/Resolving]
  - Laryngotracheal operation [Recovering/Resolving]
  - Thrombocytopenia [Recovering/Resolving]
  - Intra-abdominal pressure increased [Unknown]
  - Platelet transfusion [Unknown]
  - Intra-abdominal haemorrhage [Unknown]
  - Coagulopathy [Unknown]
  - Pneumonia aspiration [Recovering/Resolving]
  - Splenectomy [Unknown]
